FAERS Safety Report 16371388 (Version 1)
Quarter: 2019Q2

REPORT INFORMATION
  Report Type: Spontaneous
  Country: IL (occurrence: IL)
  Receive Date: 20190530
  Receipt Date: 20190530
  Transmission Date: 20190711
  Serious: Yes (Other)
  Sender: FDA-Public Use
  Company Number: PHHY2019IL120270

PATIENT
  Age: 68 Year
  Sex: Male

DRUGS (1)
  1. NILOTINIB [Suspect]
     Active Substance: NILOTINIB
     Indication: HYPERPLASIA
     Dosage: UNK
     Route: 065
     Dates: start: 201705

REACTIONS (2)
  - Stevens-Johnson syndrome [Unknown]
  - Product use in unapproved indication [Unknown]
